FAERS Safety Report 10048841 (Version 1)
Quarter: 2014Q1

REPORT INFORMATION
  Report Type: Spontaneous
  Country: US (occurrence: US)
  Receive Date: 20140331
  Receipt Date: 20140331
  Transmission Date: 20141002
  Serious: Yes (Other)
  Sender: FDA-Public Use
  Company Number: PHHY2014US034320

PATIENT
  Age: 31 Year
  Sex: Female

DRUGS (1)
  1. PREDNISONE [Suspect]

REACTIONS (5)
  - Dyspnoea [Unknown]
  - Dysphonia [Unknown]
  - Headache [Unknown]
  - Nausea [Unknown]
  - Vomiting [Unknown]
